FAERS Safety Report 5764670-8 (Version None)
Quarter: 2008Q2

REPORT INFORMATION
  Report Type: 
  Country: None (occurrence: None)
  Receive Date: 20080611
  Receipt Date: 20080527
  Transmission Date: 20081010
  Serious: Yes (Other)
  Sender: FDA-Public Use
  Company Number: PHBS2008US04695

PATIENT
  Age: 23 Year
  Sex: Female

DRUGS (6)
  1. CYCLOSPORINE [Suspect]
     Indication: CORD BLOOD TRANSPLANT THERAPY
     Dosage: UNK
  2. CYCLOSPORINE [Suspect]
     Indication: PROPHYLAXIS AGAINST GRAFT VERSUS HOST DISEASE
  3. BUSULFAN [Concomitant]
     Route: 048
  4. CYCLOPHOSPHAMIDE [Concomitant]
     Route: 042
  5. MESNA [Concomitant]
  6. PLATELETS [Concomitant]

REACTIONS (5)
  - ACUTE GRAFT VERSUS HOST DISEASE IN SKIN [None]
  - CONVULSION [None]
  - CYSTITIS HAEMORRHAGIC [None]
  - METABOLIC DISORDER [None]
  - METABOLIC ENCEPHALOPATHY [None]
